FAERS Safety Report 16309086 (Version 1)
Quarter: 2019Q2

REPORT INFORMATION
  Report Type: Spontaneous
  Country: US (occurrence: US)
  Receive Date: 20190514
  Receipt Date: 20190514
  Transmission Date: 20190711
  Serious: No
  Sender: FDA-Public Use
  Company Number: US-PFIZER INC-2019204065

PATIENT
  Age: 63 Year
  Sex: Male

DRUGS (2)
  1. ACTHAR [Suspect]
     Active Substance: CORTICOTROPIN
     Dosage: UNK
  2. GABAPENTIN. [Suspect]
     Active Substance: GABAPENTIN
     Dosage: UNK

REACTIONS (2)
  - Balance disorder [Unknown]
  - Memory impairment [Unknown]
